FAERS Safety Report 17305499 (Version 7)
Quarter: 2023Q2

REPORT INFORMATION
  Report Type: Spontaneous
  Country: US (occurrence: US)
  Receive Date: 20200123
  Receipt Date: 20230407
  Transmission Date: 20230721
  Serious: Yes (Hospitalization)
  Sender: FDA-Public Use
  Company Number: US-PFIZER INC-2020029835

PATIENT
  Age: 76 Year
  Sex: Female
  Weight: 70.31 kg

DRUGS (10)
  1. DESVENLAFAXINE SUCCINATE [Suspect]
     Active Substance: DESVENLAFAXINE SUCCINATE
     Indication: Antidepressant drug level
     Dosage: 100 MG, 1X/DAY
  2. CHOLECALCIFEROL [Concomitant]
     Active Substance: CHOLECALCIFEROL
     Dosage: 2000 IU, 1X/DAY
  3. CYANOCOBALAMIN [Concomitant]
     Active Substance: CYANOCOBALAMIN
     Dosage: 1 ML, MONTHLY (INJECT 1 ML INTO THE SHOULDER, THIGH, OR BUTTOCKS)
  4. FLONASE [Concomitant]
     Active Substance: FLUTICASONE PROPIONATE
     Dosage: 1 DF, 1X/DAY (ADMINISTER 1 SPRAY INTO EACH NOSTRIL 1 TIME EACH DAY)
  5. MELATONIN [Concomitant]
     Active Substance: MELATONIN
     Dosage: 9 MG, 1X/DAY (EVERY NIGHT)
     Route: 048
  6. PROTONIX [Concomitant]
     Active Substance: PANTOPRAZOLE SODIUM
     Dosage: 1 DF, 1X/DAY
     Route: 048
  7. PROVIGIL [Concomitant]
     Active Substance: MODAFINIL
     Dosage: 200 MG, 2X/DAY (200MG IN THE MORNING AND 200MG IN THE EVENING)
     Route: 048
  8. SODIUM CHLORIDE [Concomitant]
     Active Substance: SODIUM CHLORIDE
     Dosage: 1 G, 1X/DAY (30 MINUTES AFTER SAME MEAL)
     Route: 048
  9. SUNOSI [Concomitant]
     Active Substance: SOLRIAMFETOL
     Dosage: 150 MG, 1X/DAY
     Route: 048
  10. TRELEGY ELLIPTA [Concomitant]
     Active Substance: FLUTICASONE FUROATE\UMECLIDINIUM BROMIDE\VILANTEROL TRIFENATATE
     Dosage: 1 DF, 1X/DAY (1 PUFF)

REACTIONS (6)
  - Hyponatraemia [Unknown]
  - Renal disorder [Unknown]
  - Serum serotonin decreased [Unknown]
  - Nausea [Unknown]
  - Fatigue [Unknown]
  - Pollakiuria [Unknown]
